FAERS Safety Report 15343804 (Version 3)
Quarter: 2018Q3

REPORT INFORMATION
  Report Type: Spontaneous
  Country: SK (occurrence: SK)
  Receive Date: 20180903
  Receipt Date: 20180913
  Transmission Date: 20181010
  Serious: Yes (Other)
  Sender: FDA-Public Use
  Company Number: SK-PFIZER INC-2018351512

PATIENT
  Age: 45 Year
  Sex: Male
  Weight: 70 kg

DRUGS (1)
  1. SOLU?MEDROL [Suspect]
     Active Substance: METHYLPREDNISOLONE SODIUM SUCCINATE
     Dosage: 1000 MG, PULSE THERAPY 3 DAYS IN A ROW
     Route: 042
     Dates: start: 201006

REACTIONS (3)
  - Depression [Unknown]
  - Nephropathy toxic [Unknown]
  - Anxiety [Unknown]
